FAERS Safety Report 21991393 (Version 1)
Quarter: 2023Q1

REPORT INFORMATION
  Report Type: Spontaneous
  Country: JP (occurrence: JP)
  Receive Date: 20230214
  Receipt Date: 20230214
  Transmission Date: 20230418
  Serious: Yes (Hospitalization, Other)
  Sender: FDA-Public Use
  Company Number: JP-TEVA-2023-JP-2855737

PATIENT
  Age: 38 Year
  Sex: Male

DRUGS (7)
  1. HYDROCORTISONE [Suspect]
     Active Substance: HYDROCORTISONE
     Indication: Adrenal insufficiency
     Dosage: 10 MILLIGRAM DAILY; ONCE DAILY
     Route: 065
  2. AMOXICILLIN [Suspect]
     Active Substance: AMOXICILLIN
     Indication: Antibiotic therapy
     Route: 065
  3. LEVOFLOXACIN [Suspect]
     Active Substance: LEVOFLOXACIN
     Indication: Antibiotic therapy
     Route: 065
  4. AXITINIB [Suspect]
     Active Substance: AXITINIB
     Indication: Renal cell carcinoma stage IV
     Route: 065
  5. AXITINIB [Suspect]
     Active Substance: AXITINIB
     Indication: Metastases to lung
  6. LEVOTHYROXINE [Concomitant]
     Active Substance: LEVOTHYROXINE
     Indication: Hypothyroidism
     Dosage: 75 MICROGRAM DAILY; ONCE DAILY
     Route: 065
  7. PREDNISOLONE [Concomitant]
     Active Substance: PREDNISOLONE
     Indication: Radiation pneumonitis
     Dosage: 20 MILLIGRAM DAILY; ONCE DAILY
     Route: 048

REACTIONS (6)
  - Hypothyroidism [Recovered/Resolved]
  - Adrenal insufficiency [Recovered/Resolved]
  - Staphylococcal infection [Recovering/Resolving]
  - Necrosis [Recovering/Resolving]
  - Bronchitis [Recovering/Resolving]
  - Drug ineffective [Unknown]
